FAERS Safety Report 18958043 (Version 1)
Quarter: 2021Q1

REPORT INFORMATION
  Report Type: Spontaneous
  Country: US (occurrence: US)
  Receive Date: 20210302
  Receipt Date: 20210302
  Transmission Date: 20210420
  Serious: Yes (Hospitalization)
  Sender: FDA-Public Use
  Company Number: None

PATIENT
  Sex: Male
  Weight: 98 kg

DRUGS (4)
  1. DACARBAZINE. [Concomitant]
     Active Substance: DACARBAZINE
  2. (BRENTUXIMAB VEDOTIN [Concomitant]
  3. DOXORUBICIN [Suspect]
     Active Substance: DOXORUBICIN
  4. VINBLASTINE SULFATE. [Concomitant]
     Active Substance: VINBLASTINE SULFATE

REACTIONS (6)
  - Pancytopenia [None]
  - Febrile neutropenia [None]
  - Oral candidiasis [None]
  - Abdominal pain [None]
  - Transaminases increased [None]
  - Hyperbilirubinaemia [None]

NARRATIVE: CASE EVENT DATE: 20210222
